FAERS Safety Report 8958189 (Version 2)
Quarter: 2013Q1

REPORT INFORMATION
  Report Type: Spontaneous
  Country: FR (occurrence: FR)
  Receive Date: 20121211
  Receipt Date: 20130128
  Transmission Date: 20140127
  Serious: Yes (Other)
  Sender: FDA-Public Use
  Company Number: PHHY2012FR113534

PATIENT
  Age: 47 Year
  Sex: Male
  Weight: 96 kg

DRUGS (4)
  1. ONBREZ [Suspect]
     Indication: CHRONIC OBSTRUCTIVE PULMONARY DISEASE
     Dosage: UNK
     Dates: start: 20121117, end: 20121117
  2. LOXAPAC [Concomitant]
     Indication: PSYCHOTIC DISORDER
     Dosage: 100 MG, QD
     Route: 048
  3. LOXAPAC [Concomitant]
     Dosage: 25 MG/ML, UNK
     Route: 048
  4. PARKINANE LP [Concomitant]
     Dosage: 5 MG, QD
     Route: 048

REACTIONS (2)
  - Bronchospasm [Recovered/Resolved]
  - Syncope [Recovered/Resolved]
